FAERS Safety Report 9017361 (Version 2)
Quarter: 2013Q1

REPORT INFORMATION
  Report Type: Report from Study
  Country: FR (occurrence: FR)
  Receive Date: 20130117
  Receipt Date: 20130123
  Transmission Date: 20140127
  Serious: Yes (Hospitalization)
  Sender: FDA-Public Use
  Company Number: FR-ROCHE-1177607

PATIENT
  Age: 78 Year
  Sex: Male
  Weight: 80 kg

DRUGS (5)
  1. VISMODEGIB [Suspect]
     Indication: BASAL CELL CARCINOMA
     Dosage: DATE OF LAST DOSE PRIOR TO SAE: 25/DEC/2012
     Route: 048
     Dates: start: 20121017
  2. KARDEGIC [Concomitant]
     Indication: MYOCARDIAL INFARCTION
     Route: 065
     Dates: start: 201205
  3. CARDENSIEL [Concomitant]
     Indication: AORTIC ANEURYSM
     Route: 065
     Dates: start: 201205
  4. COVERSYL [Concomitant]
     Indication: HYPERTENSION
     Route: 065
     Dates: start: 201205, end: 20121229
  5. INEGY [Concomitant]
     Indication: HYPERCHOLESTEROLAEMIA
     Route: 065
     Dates: start: 201205

REACTIONS (1)
  - Anaemia [Not Recovered/Not Resolved]
